FAERS Safety Report 9331571 (Version 2)
Quarter: 2013Q2

REPORT INFORMATION
  Report Type: Spontaneous
  Country: FR (occurrence: FR)
  Receive Date: 20130605
  Receipt Date: 20130626
  Transmission Date: 20140414
  Serious: Yes (Hospitalization)
  Sender: FDA-Public Use
  Company Number: FR-ASTRAZENECA-2013SE39826

PATIENT
  Age: 1011 Month
  Sex: Male
  Weight: 70 kg

DRUGS (4)
  1. CASODEX [Suspect]
     Indication: PROSTATE CANCER
     Route: 048
     Dates: start: 20120512, end: 20130209
  2. BICALUTAMIDE [Suspect]
     Indication: PROSTATE CANCER
     Route: 048
     Dates: start: 20130209, end: 201303
  3. ENANTONE [Suspect]
     Indication: PROSTATE CANCER
     Route: 065
     Dates: start: 20120512, end: 20130209
  4. SECALIP [Concomitant]
     Indication: HYPERCHOLESTEROLAEMIA
     Dates: start: 20061024

REACTIONS (7)
  - Dyspnoea [Recovered/Resolved with Sequelae]
  - Cardiac failure [Recovering/Resolving]
  - Weight decreased [Recovering/Resolving]
  - Tachycardia [Recovered/Resolved with Sequelae]
  - Atrial fibrillation [Unknown]
  - Oedema peripheral [Recovered/Resolved with Sequelae]
  - Decreased appetite [Recovering/Resolving]
